FAERS Safety Report 20702321 (Version 1)
Quarter: 2022Q2

REPORT INFORMATION
  Report Type: Spontaneous
  Country: JP (occurrence: JP)
  Receive Date: 20220412
  Receipt Date: 20220412
  Transmission Date: 20220721
  Serious: Yes (Death, Hospitalization, Other)
  Sender: FDA-Public Use
  Company Number: JP-MSD-M2022-13789

PATIENT
  Age: 73 Year
  Sex: Male

DRUGS (3)
  1. KEYTRUDA [Suspect]
     Active Substance: PEMBROLIZUMAB
     Indication: Lung squamous cell carcinoma stage IV
     Dosage: 200 MILLIGRAM, Q3W
     Route: 041
  2. CARBOPLATIN [Concomitant]
     Active Substance: CARBOPLATIN
     Dosage: UNK
     Route: 065
  3. PACLITAXEL [Concomitant]
     Active Substance: PACLITAXEL
     Dosage: UNK
     Route: 065

REACTIONS (7)
  - Malignant neoplasm progression [Fatal]
  - Pulmonary toxicity [Unknown]
  - Adrenal insufficiency [Unknown]
  - Cholangitis sclerosing [Unknown]
  - Hepatic function abnormal [Unknown]
  - Jaundice [Unknown]
  - Headache [Unknown]
